FAERS Safety Report 7135651-7 (Version None)
Quarter: 2010Q4

REPORT INFORMATION
  Report Type: 
  Country: None (occurrence: None)
  Receive Date: 20101203
  Receipt Date: 20101201
  Transmission Date: 20110411
  Serious: Yes (Death, Hospitalization)
  Sender: FDA-Public Use
  Company Number: PHHO2010US17233

PATIENT
  Sex: Male
  Weight: 98.3 kg

DRUGS (14)
  1. AFINITOR [Suspect]
     Indication: THYROID CANCER
     Dosage: 10 MG, QD
     Route: 048
     Dates: start: 20100507, end: 20100729
  2. AFINITOR [Suspect]
     Dosage: 5 MG, QD
     Route: 048
     Dates: start: 20100730, end: 20101109
  3. CALCIUM CARBONATE [Concomitant]
  4. DECADRON [Concomitant]
  5. DEPAKOTE [Concomitant]
  6. DESIPRAMINE HYDROCHLORIDE [Concomitant]
  7. DIGOXIN [Concomitant]
  8. LASIX [Concomitant]
  9. LISINOPRIL [Concomitant]
  10. POTASSIUM CHLORIDE [Concomitant]
  11. PREVACID [Concomitant]
  12. SYNTHROID [Concomitant]
  13. TENORMIN [Concomitant]
  14. ZOLOFT [Concomitant]

REACTIONS (7)
  - ASPIRATION PLEURAL CAVITY [None]
  - DYSPNOEA [None]
  - LETHARGY [None]
  - MALIGNANT NEOPLASM PROGRESSION [None]
  - OEDEMA PERIPHERAL [None]
  - PERICARDIAL EFFUSION [None]
  - PLEURAL EFFUSION [None]
